FAERS Safety Report 8861202 (Version 4)
Quarter: 2013Q2

REPORT INFORMATION
  Report Type: Report from Study
  Country: US (occurrence: US)
  Receive Date: 20121026
  Receipt Date: 20130517
  Transmission Date: 20140414
  Serious: Yes (Hospitalization)
  Sender: FDA-Public Use
  Company Number: US-ACTELION-A-US2012-71421

PATIENT
  Age: 72 Year
  Sex: Female

DRUGS (3)
  1. TRACLEER [Suspect]
     Indication: PULMONARY ARTERIAL HYPERTENSION
     Dosage: UNK
     Route: 048
  2. COUMADIN [Concomitant]
  3. ASPIRIN [Concomitant]

REACTIONS (5)
  - Cardiac pacemaker insertion [Unknown]
  - Cardiac pacemaker removal [Unknown]
  - Cardiac disorder [Recovering/Resolving]
  - Atrial fibrillation [Recovering/Resolving]
  - Heart rate increased [Unknown]
